FAERS Safety Report 17485382 (Version 1)
Quarter: 2020Q1

REPORT INFORMATION
  Report Type: Spontaneous
  Country: KR (occurrence: KR)
  Receive Date: 20200302
  Receipt Date: 20200302
  Transmission Date: 20200409
  Serious: Yes (Other)
  Sender: FDA-Public Use
  Company Number: KR-GILEAD-2020-0452606

PATIENT
  Age: 48 Year
  Sex: Male

DRUGS (1)
  1. HEPSERA [Suspect]
     Active Substance: ADEFOVIR DIPIVOXIL
     Indication: CHRONIC HEPATITIS B
     Dosage: UNK
     Route: 065
     Dates: start: 2011, end: 2014

REACTIONS (3)
  - Osteomalacia [Recovered/Resolved]
  - Rib fracture [Recovered/Resolved]
  - Fanconi syndrome acquired [Recovered/Resolved]
